FAERS Safety Report 6821720-5 (Version None)
Quarter: 2010Q3

REPORT INFORMATION
  Report Type: 
  Country: None (occurrence: None)
  Receive Date: 20100702
  Receipt Date: 20100622
  Transmission Date: 20110219
  Serious: Yes (Other)
  Sender: FDA-Public Use
  Company Number: 2010MA000144

PATIENT
  Age: 81 Year
  Sex: Female

DRUGS (7)
  1. METOCLOPRAMIDE TABLETS USP, 10 MG (PUREPAC) (METOCLOPRAMIDE) [Suspect]
     Indication: VOMITING
     Dosage: 10 MG, PO
     Route: 048
     Dates: start: 20100524, end: 20100528
  2. WARFARIN SODIUM [Concomitant]
  3. LISINOPRIL [Concomitant]
  4. ZIMOVANE [Concomitant]
  5. LEVOTHYROXINE SODIUM [Concomitant]
  6. SODIUM [Concomitant]
  7. PREV MEDS [Concomitant]

REACTIONS (3)
  - DRUG INTERACTION [None]
  - HAEMORRHAGE [None]
  - INTERNATIONAL NORMALISED RATIO INCREASED [None]
